FAERS Safety Report 4747027-8 (Version None)
Quarter: 2005Q3

REPORT INFORMATION
  Report Type: 
  Country: None (occurrence: None)
  Receive Date: 20050817
  Receipt Date: 20050811
  Transmission Date: 20060218
  Serious: Yes (Hospitalization)
  Sender: FDA-Public Use
  Company Number: US-ABBOTT-05P-163-0308171-00

PATIENT
  Sex: Female

DRUGS (14)
  1. HUMIRA [Suspect]
     Indication: RHEUMATOID ARTHRITIS
     Route: 058
     Dates: start: 20030101, end: 20050201
  2. HUMIRA [Suspect]
     Dates: start: 20050401
  3. QUETIAPINE FUMARATE [Concomitant]
     Indication: ANXIETY
     Route: 048
     Dates: start: 20050401
  4. DONEPEZIL HYDROCHLORIDE [Concomitant]
     Indication: DRUG USE FOR UNKNOWN INDICATION
     Route: 048
  5. WARFARIN SODIUM [Concomitant]
     Indication: BLOOD DISORDER
     Route: 048
  6. TRIAMTERENE WITH HCTZ [Concomitant]
     Indication: BLOOD PRESSURE
     Dosage: 37.5/25 MG
     Route: 048
  7. RAMIPRIL [Concomitant]
     Indication: BLOOD PRESSURE
     Route: 048
  8. FOLTZ [Concomitant]
     Indication: VITAMIN SUPPLEMENTATION
     Route: 048
  9. METHYLPREDNISOLONE [Concomitant]
     Indication: ASTHENIA
     Route: 048
  10. TOLTERODINE TARTRATE [Concomitant]
     Indication: INCONTINENCE
     Route: 048
     Dates: start: 20050801
  11. ATORVASTATIN [Concomitant]
     Indication: BLOOD CHOLESTEROL
     Route: 048
  12. LEXAPRO [Concomitant]
     Indication: DEPRESSION
     Route: 048
  13. LANSOPRAZOLE [Concomitant]
     Indication: GASTROOESOPHAGEAL REFLUX DISEASE
     Route: 048
  14. MAGNESIUM [Concomitant]
     Indication: MINERAL SUPPLEMENTATION
     Route: 048
     Dates: start: 20050501

REACTIONS (3)
  - CYSTITIS [None]
  - PNEUMONIA [None]
  - PULMONARY OEDEMA [None]
